FAERS Safety Report 20432702 (Version 6)
Quarter: 2022Q3

REPORT INFORMATION
  Report Type: Report from Study
  Country: BR (occurrence: BR)
  Receive Date: 20220204
  Receipt Date: 20220721
  Transmission Date: 20221026
  Serious: Yes (Life-Threatening, Hospitalization)
  Sender: FDA-Public Use
  Company Number: BR-JNJFOC-20220144251

PATIENT
  Age: 57 Year
  Sex: Male
  Weight: 90 kg

DRUGS (9)
  1. CARFILZOMIB [Suspect]
     Active Substance: CARFILZOMIB
     Indication: Plasma cell myeloma
     Dosage: 140 MILLIGRAM
     Route: 042
     Dates: start: 20210422, end: 20211223
  2. DARATUMUMAB [Suspect]
     Active Substance: DARATUMUMAB
     Indication: Plasma cell myeloma
     Dosage: 1800 MILLIGRAM, QMO
     Route: 058
     Dates: start: 20210422, end: 20211209
  3. DEXAMETHASONE [Concomitant]
     Active Substance: DEXAMETHASONE
     Indication: Plasma cell myeloma
     Dosage: 40 MILLIGRAM
     Route: 042
     Dates: start: 20210422, end: 20211230
  4. ACYCLOVIR [Concomitant]
     Active Substance: ACYCLOVIR
     Indication: Humoral immune defect
     Dosage: 400 MILLIGRAM, QD
     Route: 048
     Dates: start: 20191114
  5. TRIMETHOPRIM [Concomitant]
     Active Substance: TRIMETHOPRIM
     Indication: Neoplasm prophylaxis
     Dosage: 960 MILLIGRAM, 3 TIMES/WK
     Route: 065
     Dates: start: 20191114
  6. HYZAAR [Concomitant]
     Active Substance: HYDROCHLOROTHIAZIDE\LOSARTAN POTASSIUM
     Indication: Hypertension
     Dosage: 32.5 MILLIGRAM, QD
     Route: 048
     Dates: start: 20210920
  7. ZOMETA [Concomitant]
     Active Substance: ZOLEDRONIC ACID
     Indication: Prophylaxis
     Dosage: UNK
     Route: 065
     Dates: start: 20220101
  8. PREDNISONE [Concomitant]
     Active Substance: PREDNISONE
     Indication: Influenza
     Dosage: 20 MILLIGRAM
     Dates: start: 20220112, end: 20220114
  9. NIMESULIDE [Concomitant]
     Active Substance: NIMESULIDE
     Indication: Influenza
     Dosage: 100 MILLIGRAM
     Dates: start: 20220112, end: 20220116

REACTIONS (1)
  - Pneumonia [Recovered/Resolved]

NARRATIVE: CASE EVENT DATE: 20220118
